FAERS Safety Report 6478593-2 (Version None)
Quarter: 2009Q4

REPORT INFORMATION
  Report Type: 
  Country: None (occurrence: None)
  Receive Date: 20091207
  Receipt Date: 20091127
  Transmission Date: 20100525
  Serious: No
  Sender: FDA-Public Use
  Company Number: CA-ELI_LILLY_AND_COMPANY-CA200909003659

PATIENT
  Sex: Male

DRUGS (2)
  1. CIALIS [Suspect]
     Indication: ERECTILE DYSFUNCTION
     Dosage: 10 MG, UNKNOWN
     Route: 048
     Dates: start: 20090912, end: 20090912
  2. CRESTOR [Concomitant]

REACTIONS (5)
  - BACK PAIN [None]
  - FLUSHING [None]
  - HEADACHE [None]
  - VISION BLURRED [None]
  - VISUAL IMPAIRMENT [None]
